FAERS Safety Report 16582092 (Version 2)
Quarter: 2019Q3

REPORT INFORMATION
  Report Type: Report from Study
  Country: US (occurrence: US)
  Receive Date: 20190717
  Receipt Date: 20190722
  Transmission Date: 20191004
  Serious: No
  Sender: FDA-Public Use
  Company Number: PHEH2019US028891

PATIENT
  Sex: Female

DRUGS (1)
  1. OMNITROPE [Suspect]
     Active Substance: SOMATROPIN
     Indication: GROWTH HORMONE DEFICIENCY
     Dosage: 1 DF, QD
     Route: 058
     Dates: start: 201901

REACTIONS (3)
  - Incorrect dose administered by device [Unknown]
  - Injection site pain [Unknown]
  - Device malfunction [Unknown]
